FAERS Safety Report 4523435-5 (Version None)
Quarter: 2004Q4

REPORT INFORMATION
  Report Type: 
  Country: None (occurrence: None)
  Receive Date: 20041117
  Receipt Date: 20040629
  Transmission Date: 20050328
  Serious: Yes (Life-Threatening, Hospitalization)
  Sender: FDA-Public Use
  Company Number: US-JNJFOC-20040704824

PATIENT
  Sex: Female

DRUGS (5)
  1. LEVOFLOXACIN [Suspect]
     Indication: DRUG USE FOR UNKNOWN INDICATION
     Dosage: 500 MG, 1 IN 24 HOUR, INTRAVENOUS
     Route: 042
     Dates: start: 19980130, end: 19980207
  2. DONEPEZIL (DONEPEZIL) [Concomitant]
  3. LEVODOPA (LEVODOPA) [Concomitant]
  4. LEVOTHYROXINE SODIUM [Concomitant]
  5. OMEPRAZOLE [Concomitant]

REACTIONS (1)
  - TORSADE DE POINTES [None]
